FAERS Safety Report 18313825 (Version 1)
Quarter: 2020Q3

REPORT INFORMATION
  Report Type: Report from Study
  Country: BR (occurrence: BR)
  Receive Date: 20200925
  Receipt Date: 20200925
  Transmission Date: 20201103
  Serious: Yes (Other)
  Sender: FDA-Public Use
  Company Number: BR-JNJFOC-20200932308

PATIENT
  Age: 50 Year
  Sex: Female
  Weight: 68 kg

DRUGS (3)
  1. ATROVERAN                          /01607701/ [Concomitant]
  2. STELARA [Suspect]
     Active Substance: USTEKINUMAB
     Indication: PSORIASIS
     Dosage: WEEK 0, 4 AND EVERY 12 WEEKS
     Route: 058
     Dates: start: 20191129
  3. STELARA [Suspect]
     Active Substance: USTEKINUMAB

REACTIONS (6)
  - Arrhythmia [Unknown]
  - Arthritis [Unknown]
  - Decreased immune responsiveness [Unknown]
  - Headache [Unknown]
  - Tremor [Unknown]
  - Dyskinesia [Unknown]

NARRATIVE: CASE EVENT DATE: 2019
